FAERS Safety Report 10593483 (Version 1)
Quarter: 2014Q4

REPORT INFORMATION
  Report Type: Spontaneous
  Country: US (occurrence: None)
  Receive Date: 20141118
  Receipt Date: 20141118
  Transmission Date: 20150529
  Serious: Yes (Life-Threatening, Hospitalization, Disabling)
  Sender: FDA-Public Use
  Company Number: None

PATIENT
  Sex: Female

DRUGS (2)
  1. LIBRIUM [Suspect]
     Active Substance: CHLORDIAZEPOXIDE HYDROCHLORIDE
  2. SEROQUEL [Suspect]
     Active Substance: QUETIAPINE FUMARATE

REACTIONS (12)
  - Confusional state [None]
  - Fear of disease [None]
  - Disturbance in attention [None]
  - Feeling abnormal [None]
  - Pain [None]
  - Withdrawal syndrome [None]
  - Hallucination, visual [None]
  - Fear [None]
  - Suicide attempt [None]
  - Unevaluable event [None]
  - Family stress [None]
  - Depressed mood [None]
